FAERS Safety Report 4265994-6 (Version None)
Quarter: 2004Q1

REPORT INFORMATION
  Report Type: 
  Country: None (occurrence: None)
  Receive Date: 20040106
  Receipt Date: 20031225
  Transmission Date: 20041129
  Serious: Yes (Hospitalization)
  Sender: FDA-Public Use
  Company Number: 2003192044FR

PATIENT
  Age: 67 Year
  Sex: Male

DRUGS (4)
  1. CAMPTOSAR [Suspect]
     Indication: OESOPHAGEAL CARCINOMA
     Dosage: 60 MG/M2, CYCLIC, IV
     Route: 042
     Dates: start: 20031020, end: 20031020
  2. CISPLATIN [Suspect]
     Indication: OESOPHAGEAL CARCINOMA
     Dosage: 30 MG/M2, CYCLIC, IV
     Route: 042
     Dates: start: 20031020, end: 20031020
  3. ADALIXIN-C [Concomitant]
  4. APROVEL (IRBESARTAN) [Concomitant]

REACTIONS (1)
  - OESOPHAGITIS [None]
